FAERS Safety Report 17375991 (Version 2)
Quarter: 2020Q1

REPORT INFORMATION
  Report Type: Spontaneous
  Country: US (occurrence: US)
  Receive Date: 20200206
  Receipt Date: 20200305
  Transmission Date: 20200409
  Serious: Yes (Death, Other)
  Sender: FDA-Public Use
  Company Number: US-ROCHE-2543279

PATIENT
  Age: 51 Year
  Sex: Male

DRUGS (4)
  1. SULFAMETHOXAZOLE/TRIMETHOPRIM [Concomitant]
     Active Substance: SULFAMETHOXAZOLE\TRIMETHOPRIM
     Route: 065
  2. GANCICLOVIR. [Suspect]
     Active Substance: GANCICLOVIR
     Indication: PNEUMOCYSTIS JIROVECII PNEUMONIA
     Route: 042
     Dates: start: 201403
  3. VALGANCICLOVIR. [Suspect]
     Active Substance: VALGANCICLOVIR
     Indication: PNEUMOCYSTIS JIROVECII PNEUMONIA
     Route: 048
     Dates: start: 2014
  4. GANCICLOVIR. [Suspect]
     Active Substance: GANCICLOVIR
     Route: 042
     Dates: start: 201406

REACTIONS (7)
  - Cytomegalovirus chorioretinitis [Unknown]
  - Cytomegalovirus viraemia [Unknown]
  - Pneumonia cytomegaloviral [Fatal]
  - Encephalitis cytomegalovirus [Fatal]
  - Drug ineffective [Unknown]
  - Haemophagocytic lymphohistiocytosis [Fatal]
  - Pyrexia [Unknown]

NARRATIVE: CASE EVENT DATE: 201403
